FAERS Safety Report 23197629 (Version 3)
Quarter: 2025Q3

REPORT INFORMATION
  Report Type: Report from Study
  Country: KR (occurrence: KR)
  Receive Date: 20231117
  Receipt Date: 20250827
  Transmission Date: 20251020
  Serious: Yes (Death, Hospitalization, Other)
  Sender: PFIZER
  Company Number: KR-ONO-2023KR027869

PATIENT
  Age: 61 Year
  Sex: Male
  Weight: 50.7 kg

DRUGS (8)
  1. BRAFTOVI [Suspect]
     Active Substance: ENCORAFENIB
     Indication: Colon cancer
     Dosage: 300 MG, EVERYDAY
     Route: 048
     Dates: start: 20230711
  2. BRAFTOVI [Suspect]
     Active Substance: ENCORAFENIB
     Dosage: 225 MG, EVERYDAY
     Route: 048
     Dates: start: 20231002, end: 20231016
  3. CETUXIMAB [Concomitant]
     Active Substance: CETUXIMAB
     Indication: Colon cancer
     Dosage: 600 MG, QW
     Route: 042
     Dates: start: 20230711, end: 20230711
  4. CETUXIMAB [Concomitant]
     Active Substance: CETUXIMAB
     Route: 042
     Dates: start: 20230719, end: 20230719
  5. CETUXIMAB [Concomitant]
     Active Substance: CETUXIMAB
     Route: 042
     Dates: start: 20230809, end: 20231002
  6. HARNAL [Concomitant]
     Active Substance: TAMSULOSIN HYDROCHLORIDE
     Indication: Benign prostatic hyperplasia
     Dosage: 0.2 MG, EVERYDAY
     Route: 048
     Dates: start: 20230711, end: 20230717
  7. LYRICA [Concomitant]
     Active Substance: PREGABALIN
     Indication: Abdominal pain upper
     Dosage: 75 MG, Q12H
     Route: 048
     Dates: start: 20230711, end: 20230718
  8. NEXILEN S [Concomitant]

REACTIONS (6)
  - Sepsis [Fatal]
  - Sacral pain [Not Recovered/Not Resolved]
  - Infection [Unknown]
  - Hypoglycaemia [Unknown]
  - Abdominal pain [Not Recovered/Not Resolved]
  - Underdose [Unknown]

NARRATIVE: CASE EVENT DATE: 20230714
